FAERS Safety Report 8990654 (Version 1)
Quarter: 2012Q4

REPORT INFORMATION
  Report Type: 
  Country: DK (occurrence: JP)
  Receive Date: 20121228
  Receipt Date: 20121228
  Transmission Date: 20130627
  Serious: Yes (Life-Threatening)
  Sender: FDA-Public Use
  Company Number: JP-FRI-1000026517

PATIENT
  Age: 35 Year
  Sex: Male

DRUGS (10)
  1. LEXAPRO [Suspect]
     Indication: DEPRESSION
     Dosage: 10 mg
     Route: 048
     Dates: start: 20111116, end: 20111130
  2. LEXAPRO [Suspect]
     Indication: DEPRESSION
     Dosage: 20 mg
     Route: 048
     Dates: start: 20111201, end: 20111203
  3. DOGMATYL [Concomitant]
     Dosage: 150 mg
     Route: 048
     Dates: start: 20111109
  4. WYPAX [Concomitant]
     Dosage: 1.5 mg
     Route: 048
     Dates: start: 20111109, end: 20111130
  5. MYSLEE [Concomitant]
     Dosage: 5 mg
     Route: 048
     Dates: start: 20111109
  6. DEPAS [Concomitant]
     Dosage: 0.5 mg
     Route: 048
     Dates: start: 20111109
  7. LEXOTAN [Concomitant]
     Dosage: 12 mg
     Route: 048
     Dates: start: 20111201, end: 20111207
  8. ASUMEJI [Concomitant]
     Route: 048
  9. KIPRES [Concomitant]
     Dosage: 10 mg
     Route: 048
  10. TAKEPRON [Concomitant]
     Dosage: 30 mg
     Route: 048

REACTIONS (5)
  - Loss of consciousness [Recovered/Resolved]
  - Bradycardia [Recovered/Resolved]
  - Headache [Unknown]
  - Asthenia [Unknown]
  - Parosmia [Not Recovered/Not Resolved]
